FAERS Safety Report 4810944-4 (Version None)
Quarter: 2005Q4

REPORT INFORMATION
  Report Type: 
  Country: None (occurrence: None)
  Receive Date: 20051027
  Receipt Date: 20051020
  Transmission Date: 20060501
  Serious: Yes (Hospitalization)
  Sender: FDA-Public Use
  Company Number: FR-ABBOTT-05P-056-0314681-00

PATIENT
  Age: 59 Year
  Sex: Female

DRUGS (5)
  1. KETOPROFEN [Suspect]
     Indication: PAIN IN EXTREMITY
     Dosage: CONTROLLED/MODIFIED
     Route: 048
     Dates: start: 20050408, end: 20050420
  2. KETOPROFEN [Suspect]
     Indication: SCIATICA
  3. RAMIPRIL [Interacting]
     Indication: CARDIOMYOPATHY
     Route: 048
     Dates: end: 20050420
  4. ALDACTAZINE [Interacting]
     Indication: SCIATICA
     Route: 048
     Dates: end: 20050420
  5. ACETAMINOPHEN W/ PROPOXYPHENE HCL [Concomitant]
     Indication: PAIN IN EXTREMITY
     Dates: start: 20040401

REACTIONS (3)
  - DRUG INTERACTION [None]
  - HYPERKALAEMIA [None]
  - RENAL IMPAIRMENT [None]
